APPROVED DRUG PRODUCT: LEFLUNOMIDE
Active Ingredient: LEFLUNOMIDE
Strength: 20MG
Dosage Form/Route: TABLET;ORAL
Application: A077083 | Product #002
Applicant: BARR LABORATORIES INC
Approved: Sep 13, 2005 | RLD: No | RS: No | Type: DISCN